FAERS Safety Report 9110972 (Version 1)
Quarter: 2013Q1

REPORT INFORMATION
  Report Type: Spontaneous
  Country: US (occurrence: US)
  Receive Date: 20130219
  Receipt Date: 20130219
  Transmission Date: 20140127
  Serious: No
  Sender: FDA-Public Use
  Company Number: US-BRISTOL-MYERS SQUIBB COMPANY-16723744

PATIENT
  Age: 46 Year
  Sex: Female
  Weight: 131.52 kg

DRUGS (9)
  1. ABATACEPT SUBQ INJECTION 125MG/ML [Suspect]
     Indication: RHEUMATOID ARTHRITIS
     Dosage: LAST DATE OF INFUSION:11JUN2012?FREQ:1 INFUSION AND 1 INJECTION ONCE A WEEK
     Route: 058
     Dates: start: 20120611
  2. PLAQUENIL [Concomitant]
  3. SULFASALAZINE [Concomitant]
  4. SYNTHROID [Concomitant]
  5. BIOTIN [Concomitant]
     Dosage: VITAMIN BIOTIN
  6. VITAMIN D [Concomitant]
  7. LORTAB [Concomitant]
  8. FLEXERIL [Concomitant]
  9. OXYCODONE [Concomitant]

REACTIONS (1)
  - Drug dose omission [Unknown]
